FAERS Safety Report 6143321-7 (Version None)
Quarter: 2009Q2

REPORT INFORMATION
  Report Type: 
  Country: None (occurrence: None)
  Receive Date: 20090403
  Receipt Date: 20090330
  Transmission Date: 20091009
  Serious: Yes (Disabling)
  Sender: FDA-Public Use
  Company Number: B0563213A

PATIENT
  Sex: Male
  Weight: 60 kg

DRUGS (5)
  1. RELENZA [Suspect]
     Indication: INFLUENZA
     Dosage: 10MG TWICE PER DAY
     Route: 055
     Dates: start: 20090220, end: 20090223
  2. MEIACT [Suspect]
     Indication: INFECTION
     Dosage: 300MG THREE TIMES PER DAY
     Route: 048
     Dates: start: 20090220, end: 20090224
  3. CALONAL [Suspect]
     Indication: INFLUENZA
     Dosage: 1.5G AS REQUIRED
     Route: 048
     Dates: start: 20090220, end: 20090220
  4. CHINESE HERBAL MEDICINE [Concomitant]
     Dates: start: 20090223
  5. DASEN [Concomitant]
     Dates: start: 20090223

REACTIONS (1)
  - RESTLESSNESS [None]
